FAERS Safety Report 16642027 (Version 1)
Quarter: 2019Q3

REPORT INFORMATION
  Report Type: Spontaneous
  Country: US (occurrence: US)
  Receive Date: 20190729
  Receipt Date: 20190729
  Transmission Date: 20191004
  Serious: Yes (Other)
  Sender: FDA-Public Use
  Company Number: US-PACIRA-201900253

PATIENT

DRUGS (1)
  1. EXPAREL [Suspect]
     Active Substance: BUPIVACAINE
     Indication: POSTOPERATIVE ANALGESIA
     Dosage: UNK DOSE ; IN ADDITION TO ^STANDARD THERAPY^
     Route: 032

REACTIONS (5)
  - Pleural effusion [Unknown]
  - Pericarditis [Unknown]
  - Pericardial effusion [Unknown]
  - Gastrointestinal disorder [Unknown]
  - Off label use [Unknown]
